FAERS Safety Report 14813341 (Version 2)
Quarter: 2021Q2

REPORT INFORMATION
  Report Type: Spontaneous
  Country: FR (occurrence: FR)
  Receive Date: 20180426
  Receipt Date: 20210426
  Transmission Date: 20210716
  Serious: Yes (Hospitalization)
  Sender: FDA-Public Use
  Company Number: FR-TEVA-2018-FR-886203

PATIENT
  Age: 82 Year
  Sex: Female

DRUGS (12)
  1. LEVOFLOXACINE HEMIHYDRATE [Suspect]
     Active Substance: LEVOFLOXACIN
     Dosage: 1000 MILLIGRAM DAILY;
     Route: 042
     Dates: start: 20180105, end: 20180108
  2. CLINDAMYCINE BASE [Suspect]
     Active Substance: CLINDAMYCIN HYDROCHLORIDE
     Indication: OSTEOMYELITIS
     Dosage: 1200 MILLIGRAM DAILY;
     Route: 048
     Dates: start: 20180108, end: 20180122
  3. ALPRAZOLAM. [Concomitant]
     Active Substance: ALPRAZOLAM
  4. GANFORT 300 MICROGRAMMES/ML + 5 MG/ML, COLLYRE EN SOLUTION [Concomitant]
  5. LEVOFLOXACINE HEMIHYDRATE [Suspect]
     Active Substance: LEVOFLOXACIN
     Indication: OSTEOMYELITIS
     Dosage: 1000 MILLIGRAM DAILY;
     Route: 048
     Dates: start: 20180108, end: 20180122
  6. AMLODIPINE [Suspect]
     Active Substance: AMLODIPINE BESYLATE
     Indication: HYPERTENSION
     Dosage: 10 MILLIGRAM DAILY;
     Route: 048
     Dates: start: 20180119, end: 20180122
  7. AMLODIPINE [Suspect]
     Active Substance: AMLODIPINE BESYLATE
     Dosage: 5 MILLIGRAM DAILY;
     Route: 048
     Dates: start: 20180111, end: 20180119
  8. SIMVASTATINE [Concomitant]
     Active Substance: SIMVASTATIN
  9. MOCLOBEMIDE [Concomitant]
     Active Substance: MOCLOBEMIDE
  10. CLINDAMYCINE (PHOSPHATE DE) [Suspect]
     Active Substance: CLINDAMYCIN PHOSPHATE
     Indication: OSTEOMYELITIS
     Dosage: 1200 MILLIGRAM DAILY;
     Route: 042
     Dates: start: 20180105, end: 20180108
  11. RILMENIDINE BIOGARAN [Concomitant]
     Active Substance: RILMENIDINE
  12. MALEATE D^ENALAPRIL [Concomitant]

REACTIONS (1)
  - Toxic skin eruption [Recovering/Resolving]

NARRATIVE: CASE EVENT DATE: 20180118
